FAERS Safety Report 23114835 (Version 1)
Quarter: 2023Q4

REPORT INFORMATION
  Report Type: Report from Study
  Country: US (occurrence: US)
  Receive Date: 20231027
  Receipt Date: 20231027
  Transmission Date: 20240110
  Serious: Yes (Other)
  Sender: FDA-Public Use
  Company Number: US-ASTELLAS-2023US031836

PATIENT
  Age: 61 Year
  Sex: Male

DRUGS (2)
  1. ENZALUTAMIDE [Suspect]
     Active Substance: ENZALUTAMIDE
     Indication: Prostate cancer
     Route: 048
     Dates: start: 20230731
  2. ENZALUTAMIDE [Suspect]
     Active Substance: ENZALUTAMIDE
     Indication: Bone cancer

REACTIONS (12)
  - Loss of consciousness [Unknown]
  - Dizziness [Unknown]
  - Skin fissures [Unknown]
  - Skin disorder [Unknown]
  - Depression [Unknown]
  - Alopecia [Unknown]
  - Asthenia [Unknown]
  - Balance disorder [Unknown]
  - Accident [Unknown]
  - Dyspnoea [Unknown]
  - Product size issue [Unknown]
  - Product use complaint [Unknown]

NARRATIVE: CASE EVENT DATE: 20231001
